FAERS Safety Report 6765518-5 (Version None)
Quarter: 2010Q2

REPORT INFORMATION
  Report Type: 
  Country: None (occurrence: None)
  Receive Date: 20100611
  Receipt Date: 20100511
  Transmission Date: 20101027
  Serious: No
  Sender: FDA-Public Use
  Company Number: US-BAYER-201015458BCC

PATIENT
  Age: 34 Year
  Sex: Male
  Weight: 113 kg

DRUGS (2)
  1. ALEVE-D SINUS + COLD [Suspect]
     Indication: NASOPHARYNGITIS
     Route: 048
     Dates: start: 20100101
  2. CLARITIN [Suspect]
     Indication: MULTIPLE ALLERGIES
     Dosage: TOTAL DAILY DOSE: 10 MG  UNIT DOSE: 10 MG
     Route: 048
     Dates: start: 20100501

REACTIONS (3)
  - DIZZINESS [None]
  - PYREXIA [None]
  - VOMITING [None]
